FAERS Safety Report 4604299-8 (Version None)
Quarter: 2005Q1

REPORT INFORMATION
  Report Type: 
  Country: None (occurrence: None)
  Receive Date: 20050310
  Receipt Date: 20040713
  Transmission Date: 20050727
  Serious: Yes (Hospitalization, Other)
  Sender: FDA-Public Use
  Company Number: DE-ABBOTT-04P-062-0266895-00

PATIENT
  Sex: Female

DRUGS (5)
  1. CLARITHROMYCIN [Suspect]
     Indication: HELICOBACTER INFECTION
     Dates: start: 20040524, end: 20040530
  2. PANTOPRAZOLE [Suspect]
     Indication: HELICOBACTER INFECTION
     Dates: start: 20040524, end: 20040530
  3. AMOXICILLIN [Suspect]
     Indication: HELICOBACTER INFECTION
     Dates: start: 20040524, end: 20040530
  4. L-THYROXIN [Concomitant]
     Indication: THYROID DISORDER
  5. TIBOLONE [Concomitant]
     Indication: HORMONE REPLACEMENT THERAPY

REACTIONS (2)
  - GRAND MAL CONVULSION [None]
  - NAUSEA [None]
